FAERS Safety Report 9816981 (Version 2)
Quarter: 2014Q1

REPORT INFORMATION
  Report Type: Report from Study
  Country: JP (occurrence: JP)
  Receive Date: 20140114
  Receipt Date: 20140122
  Transmission Date: 20141002
  Serious: Yes (Other)
  Sender: FDA-Public Use
  Company Number: JP-GLAXOSMITHKLINE-B0958352B

PATIENT
  Age: 51 Year
  Sex: Female

DRUGS (1)
  1. GSK1120212 [Suspect]
     Indication: BILE DUCT CANCER
     Dosage: 2MG PER DAY
     Route: 048
     Dates: start: 20131216

REACTIONS (1)
  - Platelet count decreased [Unknown]
